FAERS Safety Report 6141615-2 (Version None)
Quarter: 2009Q2

REPORT INFORMATION
  Report Type: 
  Country: None (occurrence: None)
  Receive Date: 20090402
  Receipt Date: 20090326
  Transmission Date: 20091009
  Serious: Yes (Hospitalization)
  Sender: FDA-Public Use
  Company Number: B0537538A

PATIENT
  Sex: Female

DRUGS (7)
  1. SERETIDE [Suspect]
     Indication: ASTHMA
     Dosage: 2PUFF TWICE PER DAY
     Route: 055
     Dates: start: 20080101
  2. VENTOLIN [Suspect]
     Indication: ASTHMA
     Dosage: 100MCG AS REQUIRED
     Route: 055
  3. PERINDOPRIL ERBUMINE [Suspect]
     Indication: HYPERTENSION
  4. PRAVASTATIN [Suspect]
     Dates: start: 20070101
  5. QUININE [Suspect]
     Dates: start: 20070101
  6. ADCAL [Suspect]
     Indication: BONE DENSITOMETRY
     Dates: start: 20070101
  7. WARFARIN SODIUM [Suspect]
     Dates: start: 20080101, end: 20080101

REACTIONS (5)
  - COUGH [None]
  - DYSPNOEA [None]
  - MIDDLE INSOMNIA [None]
  - NASOPHARYNGITIS [None]
  - THROMBOSIS [None]
